FAERS Safety Report 10963152 (Version 1)
Quarter: 2015Q1

REPORT INFORMATION
  Report Type: Spontaneous
  Country: US (occurrence: US)
  Receive Date: 20150205
  Receipt Date: 20150205
  Transmission Date: 20150721
  Serious: Yes (Death)
  Sender: FDA-Public Use
  Company Number: US-APOTEX-2015AP006129

PATIENT
  Age: 56 Year
  Sex: Male

DRUGS (5)
  1. MORPHINE [Suspect]
     Active Substance: MORPHINE
  2. DOXEPIN [Suspect]
     Active Substance: DOXEPIN
  3. TRAMADOL HYDROCHLORIDE. [Suspect]
     Active Substance: TRAMADOL HYDROCHLORIDE
  4. COCAINE [Suspect]
     Active Substance: COCAINE
  5. CODEINE [Suspect]
     Active Substance: CODEINE

REACTIONS (1)
  - Drug abuse [Fatal]
